FAERS Safety Report 16776011 (Version 1)
Quarter: 2019Q3

REPORT INFORMATION
  Report Type: Spontaneous
  Country: US (occurrence: US)
  Receive Date: 20190716
  Receipt Date: 20190716
  Transmission Date: 20191005
  Serious: No
  Sender: FDA-Public Use
  Company Number: None

PATIENT
  Age: 75 Year
  Sex: Female
  Weight: 90.72 kg

DRUGS (1)
  1. STELARA [Suspect]
     Active Substance: USTEKINUMAB
     Indication: PSORIATIC ARTHROPATHY
     Dosage: ?          OTHER FREQUENCY:DAY 0 AND DAY 28;?
     Route: 058
     Dates: start: 201805

REACTIONS (5)
  - Infection [None]
  - Pruritus [None]
  - Neuralgia [None]
  - Transient ischaemic attack [None]
  - Peripheral artery surgery [None]
